FAERS Safety Report 9649164 (Version 1)
Quarter: 2013Q4

REPORT INFORMATION
  Report Type: Spontaneous
  Country: US (occurrence: US)
  Receive Date: 20131028
  Receipt Date: 20131028
  Transmission Date: 20140711
  Serious: No
  Sender: FDA-Public Use
  Company Number: US-SA-POMP-1003220

PATIENT
  Age: 42 Year
  Sex: Female
  Weight: 104.32 kg

DRUGS (12)
  1. ALGLUCOSIDASE ALFA [Suspect]
     Indication: GLYCOGEN STORAGE DISEASE TYPE II
     Dosage: 20 MG/KG, Q2W
     Route: 042
     Dates: start: 201205
  2. PARACETAMOL [Concomitant]
     Indication: PREMEDICATION
     Dosage: 500 MG, UNK
     Route: 042
     Dates: start: 20130816
  3. DIPHENHYDRAMINE [Concomitant]
     Indication: PREMEDICATION
     Dosage: 50 MG, UNK
     Route: 042
     Dates: start: 20130816
  4. DIPHENHYDRAMINE [Concomitant]
     Indication: PREMEDICATION
  5. CYCLOBENZAPRINE HYDROCHLORIDE [Concomitant]
     Indication: PRODUCT USED FOR UNKNOWN INDICATION
     Dosage: 10 MG, QD
     Route: 065
  6. FEXOFENADINE HYDROCHLORIDE [Concomitant]
     Indication: PRODUCT USED FOR UNKNOWN INDICATION
     Dosage: 180 MG, QD
     Route: 065
  7. ALLIUM SATIVUM [Concomitant]
     Indication: PRODUCT USED FOR UNKNOWN INDICATION
     Dosage: 1 DF, QD
     Route: 065
  8. MELOXICAM [Concomitant]
     Indication: PRODUCT USED FOR UNKNOWN INDICATION
     Dosage: 15 MG, QD
     Route: 065
  9. VITAMINS NOS [Concomitant]
     Indication: PRODUCT USED FOR UNKNOWN INDICATION
     Dosage: UNK
     Route: 065
  10. OMEPRAZOLE [Concomitant]
     Indication: PRODUCT USED FOR UNKNOWN INDICATION
     Dosage: 40 MG, QD
     Route: 065
  11. ROPINIROLE HYDROCHLORIDE [Concomitant]
     Indication: PRODUCT USED FOR UNKNOWN INDICATION
     Dosage: 1 MG, BID
     Route: 065
  12. HYDROCHLOROTHIAZIDE, TRIAMTERENE [Concomitant]
     Indication: PRODUCT USED FOR UNKNOWN INDICATION
     Dosage: 37.5/ 25 MG DAILY
     Route: 065

REACTIONS (1)
  - Rash erythematous [Unknown]
